FAERS Safety Report 18997278 (Version 8)
Quarter: 2022Q1

REPORT INFORMATION
  Report Type: Report from Study
  Country: US (occurrence: US)
  Receive Date: 20210311
  Receipt Date: 20220214
  Transmission Date: 20220423
  Serious: Yes (Other)
  Sender: FDA-Public Use
  Company Number: US-NOVARTISPH-NVSC2021US049514

PATIENT
  Age: 63 Year
  Sex: Male

DRUGS (2)
  1. COSENTYX [Suspect]
     Active Substance: SECUKINUMAB
     Indication: Product used for unknown indication
     Dosage: UNK
     Route: 065
  2. ENTRESTO [Suspect]
     Active Substance: SACUBITRIL\VALSARTAN
     Indication: Product used for unknown indication
     Dosage: UNK
     Route: 065

REACTIONS (14)
  - Lower respiratory tract infection [Unknown]
  - Bipolar disorder [Unknown]
  - Lung disorder [Unknown]
  - Inflammation [Unknown]
  - Cardiac disorder [Unknown]
  - Hypertension [Unknown]
  - COVID-19 [Unknown]
  - Migraine [Unknown]
  - Illness [Unknown]
  - Arthritis [Unknown]
  - Disorientation [Unknown]
  - Ear infection [Unknown]
  - Mental disorder [Unknown]
  - Depression [Unknown]

NARRATIVE: CASE EVENT DATE: 20200801
